FAERS Safety Report 5693494-5 (Version None)
Quarter: 2008Q2

REPORT INFORMATION
  Report Type: 
  Country: None (occurrence: None)
  Receive Date: 20080403
  Receipt Date: 20080331
  Transmission Date: 20081010
  Serious: Yes (Hospitalization)
  Sender: FDA-Public Use
  Company Number: A0719003A

PATIENT
  Age: 50 Year
  Sex: Male
  Weight: 108.2 kg

DRUGS (2)
  1. LAPATINIB [Suspect]
     Dosage: 1500MG PER DAY
     Route: 048
     Dates: start: 20080123
  2. GEMCITABINE [Suspect]
     Dosage: 1MGM2 CYCLIC
     Route: 042
     Dates: start: 20080123

REACTIONS (3)
  - INFECTION [None]
  - SEPSIS [None]
  - STENT OCCLUSION [None]
